FAERS Safety Report 15694345 (Version 1)
Quarter: 2018Q4

REPORT INFORMATION
  Report Type: Spontaneous
  Country: US (occurrence: US)
  Receive Date: 20181206
  Receipt Date: 20181206
  Transmission Date: 20190205
  Serious: Yes (Hospitalization, Other)
  Sender: FDA-Public Use
  Company Number: US-TEVA-2018-US-982936

PATIENT
  Sex: Female

DRUGS (1)
  1. VALSARTAN. [Suspect]
     Active Substance: VALSARTAN
     Indication: HYPERTENSION
     Dates: start: 2017

REACTIONS (4)
  - Neoplasm malignant [Unknown]
  - Wound treatment [Unknown]
  - Bronchitis [Unknown]
  - Dialysis [Unknown]

NARRATIVE: CASE EVENT DATE: 2018
